FAERS Safety Report 17242777 (Version 1)
Quarter: 2019Q4

REPORT INFORMATION
  Report Type: Spontaneous
  Country: US (occurrence: US)
  Receive Date: 20191212
  Receipt Date: 20191212
  Transmission Date: 20200122
  Serious: Yes (Other)
  Sender: FDA-Public Use
  Company Number: None

PATIENT
  Age: 54 Year
  Sex: Female
  Weight: 79.38 kg

DRUGS (2)
  1. PREGABALIN 50MG [Suspect]
     Active Substance: PREGABALIN
     Indication: NEUROPATHY PERIPHERAL
     Route: 048
     Dates: start: 201910, end: 201911
  2. PREGABALIN 50MG [Suspect]
     Active Substance: PREGABALIN
     Indication: TYPE 2 DIABETES MELLITUS
     Route: 048
     Dates: start: 201910, end: 201911

REACTIONS (2)
  - Amnesia [None]
  - Sedation [None]

NARRATIVE: CASE EVENT DATE: 20191031
